FAERS Safety Report 7866014-4 (Version None)
Quarter: 2011Q4

REPORT INFORMATION
  Report Type: 
  Country: None (occurrence: None)
  Receive Date: 20111028
  Receipt Date: 20110407
  Transmission Date: 20120403
  Serious: No
  Sender: FDA-Public Use
  Company Number: US-GLAXOSMITHKLINE-A0921828A

PATIENT
  Age: 84 Year
  Sex: Male

DRUGS (17)
  1. ADVAIR DISKUS 100/50 [Suspect]
     Indication: ASTHMA
     Dosage: 1PUFF TWICE PER DAY
     Route: 055
     Dates: start: 20110301
  2. VITAMIN D [Concomitant]
  3. MIRALAX [Concomitant]
  4. SIMVASTATIN [Concomitant]
  5. CELEBREX [Concomitant]
  6. LOSARTAN POTASSIUM [Concomitant]
  7. ASPIRIN [Concomitant]
  8. LASIX [Concomitant]
  9. ALLOPURINOL [Concomitant]
  10. SINGULAIR [Concomitant]
  11. SPIRIVA [Concomitant]
  12. LEVOTHYROXINE SODIUM [Concomitant]
  13. DILTIAZEM HCL [Concomitant]
  14. DOCUSATE [Concomitant]
  15. CHLORTHALIDONE [Concomitant]
  16. OMEPRAZOLE [Concomitant]
  17. SUPER B COMPLEX [Concomitant]

REACTIONS (4)
  - RETCHING [None]
  - TOOTH DEPOSIT [None]
  - GINGIVAL DISORDER [None]
  - TONGUE DRY [None]
